FAERS Safety Report 12904048 (Version 2)
Quarter: 2016Q4

REPORT INFORMATION
  Report Type: Spontaneous
  Country: FR (occurrence: FR)
  Receive Date: 20161102
  Receipt Date: 20161125
  Transmission Date: 20170207
  Serious: Yes (Life-Threatening, Hospitalization, Other)
  Sender: FDA-Public Use
  Company Number: PHHY2016FR135434

PATIENT
  Age: 56 Year
  Sex: Male
  Weight: 88.8 kg

DRUGS (5)
  1. LASILIX [Concomitant]
     Active Substance: FUROSEMIDE
     Indication: HYPERTENSION
     Dosage: 1 DF, UNK
     Route: 048
  2. ENTRESTO [Suspect]
     Active Substance: SACUBITRIL\VALSARTAN
     Indication: HYPERTENSION
     Dosage: 50 MG, QD
     Route: 048
     Dates: start: 20160610, end: 20161003
  3. INSPRA [Concomitant]
     Active Substance: EPLERENONE
     Indication: HYPERTENSION
     Dosage: 1 DF, UNK
     Route: 048
  4. DETENSIEL [Concomitant]
     Active Substance: BISOPROLOL FUMARATE
     Indication: HYPERTENSION
     Dosage: 1.5 DF, UNK
     Route: 048
  5. HYPERIUM [Concomitant]
     Active Substance: RILMENIDINE PHOSPHATE
     Indication: HYPERTENSION
     Dosage: 2 DF, UNK
     Route: 048

REACTIONS (11)
  - Acute kidney injury [Unknown]
  - Swollen tongue [Unknown]
  - Product use issue [Unknown]
  - Tongue oedema [Unknown]
  - Swelling face [Unknown]
  - Dysphagia [Unknown]
  - Angioedema [Recovered/Resolved]
  - Lip swelling [Unknown]
  - Dyspnoea [Unknown]
  - Aphasia [Unknown]
  - Underdose [Unknown]

NARRATIVE: CASE EVENT DATE: 20160922
